FAERS Safety Report 4983645-X (Version None)
Quarter: 2006Q2

REPORT INFORMATION
  Report Type: 
  Country: None (occurrence: None)
  Receive Date: 20060425
  Receipt Date: 20060425
  Transmission Date: 20061013
  Serious: Yes (Other)
  Sender: FDA-Public Use
  Company Number: None

PATIENT
  Age: 55 Year
  Sex: Male
  Weight: 77.6 kg

DRUGS (7)
  1. PROZAC [Suspect]
  2. MELOXICAM [Concomitant]
  3. PAROXETINE HCL [Concomitant]
  4. FLUOXETINE HCL [Concomitant]
  5. CETIRIZINE HCL [Concomitant]
  6. CODEINE PHOSPHATE AND ACETAMINOPHEN [Concomitant]
  7. SYNTHROID [Concomitant]

REACTIONS (1)
  - ABDOMINAL DISTENSION [None]
